FAERS Safety Report 8734726 (Version 2)
Quarter: 2013Q4

REPORT INFORMATION
  Report Type: Spontaneous
  Country: ES (occurrence: ES)
  Receive Date: 20120821
  Receipt Date: 20131101
  Transmission Date: 20140711
  Serious: No
  Sender: FDA-Public Use
  Company Number: ES-009507513-1207ESP007019

PATIENT
  Age: 53 Year
  Sex: Female

DRUGS (2)
  1. SYCREST [Suspect]
     Indication: BIPOLAR I DISORDER
     Dosage: 10 MG, BID
     Route: 060
     Dates: start: 2012
  2. RISPERIDONE [Concomitant]
     Route: 030

REACTIONS (2)
  - Hypotension [Unknown]
  - Drug ineffective [Unknown]
